FAERS Safety Report 4978716-8 (Version None)
Quarter: 2006Q2

REPORT INFORMATION
  Report Type: 
  Country: None (occurrence: None)
  Receive Date: 20060420
  Receipt Date: 20051019
  Transmission Date: 20061013
  Serious: Yes (Hospitalization)
  Sender: FDA-Public Use
  Company Number: US-MERCK-0510USA08308

PATIENT
  Age: 64 Year
  Sex: Female
  Weight: 73 kg

DRUGS (11)
  1. VIOXX [Suspect]
     Indication: OSTEOARTHRITIS
     Route: 048
     Dates: start: 19990901, end: 20040901
  2. LOZOL [Concomitant]
     Route: 065
     Dates: start: 19900101
  3. PREVACID [Concomitant]
     Route: 065
  4. ENTEX (OLD FORMULA) [Concomitant]
     Route: 065
  5. SYNTHROID [Concomitant]
     Route: 065
  6. [THERAPY UNSPECIFIED] [Concomitant]
     Route: 065
  7. ASCORBIC ACID [Concomitant]
     Route: 065
  8. CALCIUM (UNSPECIFIED) [Concomitant]
     Route: 065
  9. INDAPAMIDE [Concomitant]
     Route: 065
  10. VICODIN [Concomitant]
     Route: 065
  11. METOPROLOL [Concomitant]
     Route: 065
     Dates: start: 19900101

REACTIONS (15)
  - ACUTE MYOCARDIAL INFARCTION [None]
  - ANXIETY [None]
  - BACK PAIN [None]
  - BLOOD CHOLESTEROL INCREASED [None]
  - BLOOD TRIGLYCERIDES INCREASED [None]
  - CARDIAC DISORDER [None]
  - CHEST DISCOMFORT [None]
  - CORONARY ARTERY DISEASE [None]
  - DYSLIPIDAEMIA [None]
  - LIMB INJURY [None]
  - LIVER FUNCTION TEST ABNORMAL [None]
  - LYMPHADENOPATHY [None]
  - SCAR [None]
  - SKIN EXFOLIATION [None]
  - SLEEP DISORDER [None]
